FAERS Safety Report 9761269 (Version 2)
Quarter: 2013Q4

REPORT INFORMATION
  Report Type: Spontaneous
  Country: US (occurrence: US)
  Receive Date: 20131216
  Receipt Date: 20131216
  Transmission Date: 20140711
  Serious: No
  Sender: FDA-Public Use
  Company Number: US-FOUGERA-2013FO000207

PATIENT
  Age: 64 Year
  Sex: Male

DRUGS (4)
  1. SOLARAZE [Suspect]
     Indication: ACTINIC KERATOSIS
     Route: 061
  2. SOLARAZE [Suspect]
     Route: 061
  3. SUNSCREEN [Suspect]
     Route: 061
  4. GLUCOSAMINE SULFATE [Suspect]
     Indication: PRODUCT USED FOR UNKNOWN INDICATION

REACTIONS (3)
  - Application site erythema [Recovered/Resolved]
  - Dermatitis [Recovered/Resolved]
  - Application site swelling [Recovered/Resolved]
